FAERS Safety Report 7012324-2 (Version None)
Quarter: 2010Q3

REPORT INFORMATION
  Report Type: 
  Country: None (occurrence: None)
  Receive Date: 20100922
  Receipt Date: 20100916
  Transmission Date: 20110219
  Serious: Yes (Life-Threatening)
  Sender: FDA-Public Use
  Company Number: 2010SP021037

PATIENT
  Age: 70 Year
  Sex: Male

DRUGS (11)
  1. MIRTAZAPINE [Suspect]
     Indication: DEPRESSION
     Dosage: 15 MG;QD;PO; 30 MG;QD;PO; 45 MG;QD;PO
     Route: 048
     Dates: start: 20100215, end: 20100221
  2. MIRTAZAPINE [Suspect]
     Indication: DEPRESSION
     Dosage: 15 MG;QD;PO; 30 MG;QD;PO; 45 MG;QD;PO
     Route: 048
     Dates: start: 20100222, end: 20100223
  3. MIRTAZAPINE [Suspect]
     Indication: DEPRESSION
     Dosage: 15 MG;QD;PO; 30 MG;QD;PO; 45 MG;QD;PO
     Route: 048
     Dates: start: 20100224, end: 20100309
  4. PAROXETINE HYDROCHLORIDE HYDRATE (CON.) [Concomitant]
  5. TETRAMIDE (CON.) [Concomitant]
  6. PAROXETINE HYDROCHLORIDE HYDRATE (CON.) [Concomitant]
  7. CLOMIPRAMINE HYDROCHLORIDE (CON.) [Concomitant]
  8. MIANSERIN HYDROCHLORIDE (CON.) [Concomitant]
  9. SULPIRIDE (CON.) [Concomitant]
  10. QUETIAPINE FUMARATE (CON.) [Concomitant]
  11. ARIPIPRAZOLE (CON.) [Concomitant]

REACTIONS (16)
  - APPARENT DEATH [None]
  - ARTERIAL HAEMORRHAGE [None]
  - CARDIO-RESPIRATORY ARREST [None]
  - CARTILAGE INJURY [None]
  - DEMENTIA [None]
  - DEPRESSION [None]
  - DRUG WITHDRAWAL SYNDROME [None]
  - FACIAL BONES FRACTURE [None]
  - INSOMNIA [None]
  - LIVER INJURY [None]
  - PNEUMOTHORAX [None]
  - RIB FRACTURE [None]
  - SUICIDE ATTEMPT [None]
  - THERAPEUTIC PRODUCT INEFFECTIVE [None]
  - THYROID DISORDER [None]
  - TRAUMATIC LUNG INJURY [None]
